FAERS Safety Report 23482470 (Version 1)
Quarter: 2024Q1

REPORT INFORMATION
  Report Type: Report from Study
  Country: US (occurrence: US)
  Receive Date: 20240205
  Receipt Date: 20240205
  Transmission Date: 20240409
  Serious: Yes (Other)
  Sender: FDA-Public Use
  Company Number: US-Stemline Therapeutics, Inc.-2024ST000488

PATIENT
  Age: 86 Year
  Sex: Female

DRUGS (4)
  1. ORSERDU [Suspect]
     Active Substance: ELACESTRANT
     Indication: Product used for unknown indication
     Dosage: 172MG TITRATION DOSE ORDERED
     Route: 048
     Dates: end: 20240122
  2. ORSERDU [Suspect]
     Active Substance: ELACESTRANT
     Route: 048
  3. ORSERDU [Suspect]
     Active Substance: ELACESTRANT
     Dosage: TITRATION DOSAGE OF 258MG WAS NOT PRESCRIBED BY THE DOCTOR
     Dates: start: 202310
  4. ORSERDU [Suspect]
     Active Substance: ELACESTRANT
     Route: 048

REACTIONS (2)
  - Arthralgia [Not Recovered/Not Resolved]
  - Adverse event [Unknown]

NARRATIVE: CASE EVENT DATE: 20240122
